FAERS Safety Report 10274646 (Version 2)
Quarter: 2014Q3

REPORT INFORMATION
  Report Type: Report from Study
  Country: US (occurrence: US)
  Receive Date: 20140702
  Receipt Date: 20140815
  Transmission Date: 20150326
  Serious: Yes (Other)
  Sender: FDA-Public Use
  Company Number: US-ABBVIE-14P-163-1251616-00

PATIENT
  Age: 32 Year
  Sex: Female

DRUGS (2)
  1. HUMIRA [Suspect]
     Active Substance: ADALIMUMAB
     Indication: ANKYLOSING SPONDYLITIS
     Dates: start: 201210
  2. HUMIRA [Suspect]
     Active Substance: ADALIMUMAB
     Dates: start: 20140624

REACTIONS (8)
  - Condition aggravated [Not Recovered/Not Resolved]
  - Beta haemolytic streptococcal infection [Unknown]
  - Iritis [Recovered/Resolved]
  - Abnormal labour [Recovered/Resolved]
  - Ankylosing spondylitis [Not Recovered/Not Resolved]
  - Suppressed lactation [Recovered/Resolved]
  - Iritis [Recovered/Resolved]
  - Vulvovaginal mycotic infection [Recovered/Resolved]

NARRATIVE: CASE EVENT DATE: 201301
